FAERS Safety Report 10182023 (Version 1)
Quarter: 2014Q2

REPORT INFORMATION
  Report Type: Spontaneous
  Country: US (occurrence: US)
  Receive Date: 20140519
  Receipt Date: 20140519
  Transmission Date: 20141212
  Serious: No
  Sender: FDA-Public Use
  Company Number: US-009507513-1405USA000759

PATIENT
  Sex: Female

DRUGS (2)
  1. ZEGERID OTC CAPSULES [Suspect]
     Indication: PRODUCT USED FOR UNKNOWN INDICATION
     Dosage: UNK, UNKNOWN
     Route: 048
  2. ZEGERID OTC CAPSULES [Suspect]
     Dosage: 2 DF, ONCE
     Route: 048
     Dates: start: 20140429, end: 20140429

REACTIONS (2)
  - Drug effect decreased [Unknown]
  - Overdose [Unknown]
